FAERS Safety Report 19011052 (Version 1)
Quarter: 2021Q1

REPORT INFORMATION
  Report Type: Spontaneous
  Country: US (occurrence: US)
  Receive Date: 20210315
  Receipt Date: 20210315
  Transmission Date: 20210420
  Serious: Yes (Hospitalization)
  Sender: FDA-Public Use
  Company Number: None

PATIENT
  Age: 65 Year
  Sex: Female

DRUGS (4)
  1. ENBREL [Suspect]
     Active Substance: ETANERCEPT
     Indication: RHEUMATOID ARTHRITIS
     Dosage: OTHER FREQUENCY:QWK;?
     Route: 058
     Dates: start: 20180706
  2. MULTI?VIT [Concomitant]
     Active Substance: VITAMINS
  3. LAMICTAL XR [Concomitant]
     Active Substance: LAMOTRIGINE
  4. IPRATRIPIUM/SOL [Concomitant]

REACTIONS (1)
  - COVID-19 [None]

NARRATIVE: CASE EVENT DATE: 20201111
